FAERS Safety Report 16095351 (Version 5)
Quarter: 2019Q4

REPORT INFORMATION
  Report Type: Other
  Country: CA (occurrence: CA)
  Receive Date: 20190320
  Receipt Date: 20191219
  Transmission Date: 20200122
  Serious: Yes (Other)
  Sender: FDA-Public Use
  Company Number: CA-BECTON DICKINSON-2019BDN00108

PATIENT
  Age: 42 Year
  Sex: Female
  Weight: 81 kg

DRUGS (55)
  1. CHOLECALCIFEROL [Suspect]
     Active Substance: CHOLECALCIFEROL
  2. LEFLUNOMIDE. [Suspect]
     Active Substance: LEFLUNOMIDE
     Dosage: UNK
     Route: 048
  3. ORENCIA [Suspect]
     Active Substance: ABATACEPT
  4. OXYCODONE HYDROCHLORIDE. [Suspect]
     Active Substance: OXYCODONE HYDROCHLORIDE
  5. CAMELLIA SINENSIS [Concomitant]
     Active Substance: TEA LEAF
  6. CAMELLIA SINENSIS/D-ALPHA TOCOPHEROL/FISH OIL/VITAMIN D3 [Concomitant]
  7. GREEN TEA TINCTURE [Concomitant]
     Dosage: UNK
  8. TEA [Concomitant]
     Active Substance: TEA LEAF
  9. PLAQUENIL [Concomitant]
     Active Substance: HYDROXYCHLOROQUINE SULFATE
  10. ARAVA [Suspect]
     Active Substance: LEFLUNOMIDE
  11. CHLORHEXIDINE GLUCONATE ORAL RINSE [Suspect]
     Active Substance: CHLORHEXIDINE GLUCONATE
  12. CIMZIA [Suspect]
     Active Substance: CERTOLIZUMAB PEGOL
     Dosage: 400 MG CYCLICAL
  13. ENBREL [Suspect]
     Active Substance: ETANERCEPT
     Indication: RHEUMATOID ARTHRITIS
     Route: 058
  14. CETIRIZINE [Concomitant]
     Active Substance: CETIRIZINE HYDROCHLORIDE
  15. COENZYME Q10 [Concomitant]
     Active Substance: UBIDECARENONE
  16. PANTOLOC [Concomitant]
     Active Substance: PANTOPRAZOLE SODIUM
  17. VENTOLIN [Concomitant]
     Active Substance: ALBUTEROL SULFATE
  18. ZOPICLONE [Concomitant]
     Active Substance: ZOPICLONE
  19. ACETAMINOPHEN/OXYCODONE HYDROCHLORIDE/OXYCODONE TEREPHTHALATE [Suspect]
     Active Substance: ACETAMINOPHEN\OXYCODONE HYDROCHLORIDE\OXYCODONE TEREPHTHALATE
  20. OXYCODONE [Suspect]
     Active Substance: OXYCODONE
  21. PREDNISONE. [Concomitant]
     Active Substance: PREDNISONE
  22. TYLENOL [Concomitant]
     Active Substance: ACETAMINOPHEN
  23. CIMZIA [Suspect]
     Active Substance: CERTOLIZUMAB PEGOL
     Dosage: 400 MG CYCLICAL
     Route: 058
  24. ENBREL [Suspect]
     Active Substance: ETANERCEPT
     Dosage: UNK
  25. METHOTREXATE SODIUM. [Suspect]
     Active Substance: METHOTREXATE SODIUM
  26. D-ALPHA TOCOPHEROL [Concomitant]
     Active Substance: .ALPHA.-TOCOPHEROL, D-
  27. FISH OIL [Concomitant]
     Active Substance: FISH OIL
  28. IBUPROFEN. [Concomitant]
     Active Substance: IBUPROFEN
  29. PANTOPRAZOLE SODIUM. [Concomitant]
     Active Substance: PANTOPRAZOLE SODIUM
  30. REACTINE [Concomitant]
  31. VITAMIN D3 [Concomitant]
     Active Substance: CHOLECALCIFEROL
  32. VITAMIN D [Concomitant]
     Active Substance: VITAMIN D NOS
  33. ACTEMRA [Suspect]
     Active Substance: TOCILIZUMAB
  34. OXYCODONE TEREPHTHALATE [Suspect]
     Active Substance: OXYCODONE TEREPHTHALATE
  35. PERIOGARD [Suspect]
     Active Substance: CHLORHEXIDINE GLUCONATE
  36. PERIOGARD ALCOHOL FREE [Suspect]
     Active Substance: CHLORHEXIDINE GLUCONATE
     Route: 002
  37. CHOLECALCIFEROL [Concomitant]
     Active Substance: CHOLECALCIFEROL
  38. DESOGESTREL/ETHINYL ESTRADIOL [Concomitant]
     Active Substance: DESOGESTREL\ETHINYL ESTRADIOL
  39. HYDROXYCHLOROQUINE [Concomitant]
     Active Substance: HYDROXYCHLOROQUINE
  40. HYDROXYCHLOROQUINE SULFATE. [Concomitant]
     Active Substance: HYDROXYCHLOROQUINE SULFATE
  41. PANTOPRAZOLE [Concomitant]
     Active Substance: PANTOPRAZOLE
  42. ACT OXYCODONE CR [Suspect]
     Active Substance: ACETAMINOPHEN\OXYCODONE HYDROCHLORIDE
  43. CIMZIA [Suspect]
     Active Substance: CERTOLIZUMAB PEGOL
     Indication: RHEUMATOID ARTHRITIS
     Dosage: 400 MG
     Route: 058
  44. METHOTREXATE. [Suspect]
     Active Substance: METHOTREXATE
  45. VITAMIN E [Concomitant]
     Active Substance: .ALPHA.-TOCOPHEROL
  46. CHLORHEXIDINE [Suspect]
     Active Substance: CHLORHEXIDINE
     Indication: RHEUMATOID ARTHRITIS
     Dosage: UNK
     Route: 058
  47. OXYCODONE-ACETAMINOPHEN [Suspect]
     Active Substance: ACETAMINOPHEN\OXYCODONE HYDROCHLORIDE
  48. ARAVA [Concomitant]
     Active Substance: LEFLUNOMIDE
  49. ERGOCALCIFEROL. [Concomitant]
     Active Substance: ERGOCALCIFEROL
  50. PANTOPRAZOLE SODIUM ANHYDROUS [Concomitant]
     Active Substance: PANTOPRAZOLE SODIUM ANHYDROUS
  51. VITAMIN C [Concomitant]
     Active Substance: ASCORBIC ACID
  52. ACETAMINOPHEN. [Suspect]
     Active Substance: ACETAMINOPHEN
  53. CIMZIA [Suspect]
     Active Substance: CERTOLIZUMAB PEGOL
     Indication: RHEUMATOID ARTHRITIS
     Dosage: 400 MG CYCLICAL
     Route: 058
  54. LEFLUNOMIDE. [Suspect]
     Active Substance: LEFLUNOMIDE
     Dosage: UNK
  55. SIMPONI [Suspect]
     Active Substance: GOLIMUMAB
     Route: 058

REACTIONS (23)
  - Vomiting [Unknown]
  - Body temperature increased [Unknown]
  - Contraindicated product administered [Unknown]
  - Joint swelling [Unknown]
  - Urticaria [Unknown]
  - Diarrhoea [Unknown]
  - Headache [Unknown]
  - Incorrect route of product administration [Unknown]
  - Peripheral swelling [Unknown]
  - Asthenia [Unknown]
  - Back pain [Unknown]
  - Muscle spasticity [Unknown]
  - Pain [Unknown]
  - Rash [Unknown]
  - Lower respiratory tract infection [Unknown]
  - Pruritus [Unknown]
  - Abdominal pain upper [Unknown]
  - Insomnia [Unknown]
  - Night sweats [Unknown]
  - Sinusitis [Unknown]
  - Ear pain [Unknown]
  - Off label use [Unknown]
  - Respiratory disorder [Unknown]
